FAERS Safety Report 7740634-X (Version None)
Quarter: 2011Q3

REPORT INFORMATION
  Report Type: 
  Country: None (occurrence: None)
  Receive Date: 20110909
  Receipt Date: 20110901
  Transmission Date: 20111222
  Serious: Yes (Hospitalization)
  Sender: FDA-Public Use
  Company Number: US-ALEXION-A201101341

PATIENT
  Sex: Female

DRUGS (1)
  1. SOLIRIS [Suspect]
     Indication: PAROXYSMAL NOCTURNAL HAEMOGLOBINURIA
     Dosage: UNK
     Route: 042

REACTIONS (10)
  - PAIN IN EXTREMITY [None]
  - COLITIS [None]
  - BACK PAIN [None]
  - ABDOMINAL PAIN UPPER [None]
  - HEADACHE [None]
  - SPIROCHAETAL INFECTION [None]
  - BLOOD LACTATE DEHYDROGENASE INCREASED [None]
  - SEPSIS [None]
  - HAEMOGLOBIN DECREASED [None]
  - NAUSEA [None]
